FAERS Safety Report 5723425-0 (Version None)
Quarter: 2008Q2

REPORT INFORMATION
  Report Type: 
  Country: None (occurrence: None)
  Receive Date: 20080430
  Receipt Date: 20080425
  Transmission Date: 20081010
  Serious: Yes (Other)
  Sender: FDA-Public Use
  Company Number: PHHY2008CH06574

PATIENT
  Sex: Female

DRUGS (7)
  1. IMOVANE [Concomitant]
  2. TOREM [Concomitant]
  3. ACETAMINOPHEN [Concomitant]
  4. PANTOPRAZOLE SODIUM [Concomitant]
  5. TEGRETOL [Suspect]
     Dosage: 400 MG/DAY
     Dates: start: 20080301
  6. TRAZODONE HCL [Concomitant]
  7. RISPERDAL [Concomitant]
     Dates: end: 20080301

REACTIONS (1)
  - GAMMA-GLUTAMYLTRANSFERASE INCREASED [None]
